FAERS Safety Report 17015218 (Version 2)
Quarter: 2019Q4

REPORT INFORMATION
  Report Type: Spontaneous
  Country: US (occurrence: US)
  Receive Date: 20191111
  Receipt Date: 20191114
  Transmission Date: 20200122
  Serious: No
  Sender: FDA-Public Use
  Company Number: US-BAYER-2019-202893

PATIENT
  Sex: Female

DRUGS (3)
  1. ALEVE [Suspect]
     Active Substance: NAPROXEN SODIUM
     Indication: PAIN
     Route: 048
  2. ALEVE [Suspect]
     Active Substance: NAPROXEN SODIUM
  3. ADVIL LIQUI-GELS [Concomitant]
     Active Substance: IBUPROFEN

REACTIONS (2)
  - Abdominal pain upper [None]
  - Dizziness [Unknown]
